FAERS Safety Report 4354399-5 (Version None)
Quarter: 2004Q2

REPORT INFORMATION
  Report Type: 
  Country: None (occurrence: None)
  Receive Date: 20040503
  Receipt Date: 20040316
  Transmission Date: 20050107
  Serious: Yes (Hospitalization)
  Sender: FDA-Public Use
  Company Number: 2004AP01256

PATIENT
  Age: 87 Year
  Sex: Male

DRUGS (10)
  1. IRESSA [Suspect]
     Indication: LUNG ADENOCARCINOMA
     Dosage: 250 MG DAILY;PO
     Route: 048
     Dates: start: 20031209, end: 20040116
  2. IRESSA [Suspect]
     Indication: NON-SMALL CELL LUNG CANCER
     Dosage: 250 MG DAILY;PO
     Route: 048
     Dates: start: 20031209, end: 20040116
  3. IRESSA [Suspect]
     Indication: LUNG ADENOCARCINOMA
     Dosage: 250 MG DAILY; PO
     Route: 048
     Dates: start: 20040118, end: 20040127
  4. IRESSA [Suspect]
     Indication: NON-SMALL CELL LUNG CANCER
     Dosage: 250 MG DAILY; PO
     Route: 048
     Dates: start: 20040118, end: 20040127
  5. MOBIC [Concomitant]
  6. ADALAT [Concomitant]
  7. RADEN [Concomitant]
  8. NOVAMIN [Concomitant]
  9. MEDICON [Concomitant]
  10. LEPETAN [Concomitant]

REACTIONS (3)
  - INTERSTITIAL LUNG DISEASE [None]
  - PLEURAL EFFUSION [None]
  - PNEUMONIA ASPIRATION [None]
